FAERS Safety Report 18014749 (Version 3)
Quarter: 2022Q2

REPORT INFORMATION
  Report Type: Spontaneous
  Country: US (occurrence: US)
  Receive Date: 20200713
  Receipt Date: 20220425
  Transmission Date: 20220720
  Serious: No
  Sender: FDA-Public Use
  Company Number: US-PFIZER INC-2020266670

PATIENT
  Age: 77 Year
  Sex: Male

DRUGS (1)
  1. LYRICA [Suspect]
     Active Substance: PREGABALIN
     Indication: Neuropathy peripheral
     Dosage: 450 MG, 1X/DAY (150MG 3 CAPSULE ONCE A DAY)/3 CAPSULE ONCE A DAY 90 DAYS
     Route: 048

REACTIONS (2)
  - Feeling hot [Unknown]
  - Spinal disorder [Unknown]
